FAERS Safety Report 21718428 (Version 1)
Quarter: 2022Q4

REPORT INFORMATION
  Report Type: Spontaneous
  Country: SE (occurrence: SE)
  Receive Date: 20221212
  Receipt Date: 20221212
  Transmission Date: 20230113
  Serious: Yes (Other)
  Sender: FDA-Public Use
  Company Number: None

PATIENT
  Sex: Female

DRUGS (7)
  1. LISDEXAMFETAMINE DIMESYLATE [Suspect]
     Active Substance: LISDEXAMFETAMINE DIMESYLATE
     Indication: Product used for unknown indication
     Dosage: 1120 MILLIGRAM
     Route: 048
     Dates: start: 20211222
  2. VENLAFAXINE HYDROCHLORIDE [Suspect]
     Active Substance: VENLAFAXINE HYDROCHLORIDE
     Indication: Product used for unknown indication
     Dosage: 525 MILLIGRAM
     Route: 048
     Dates: start: 20211222
  3. OXYBUTYNIN [Suspect]
     Active Substance: OXYBUTYNIN
     Indication: Product used for unknown indication
     Dosage: 140 MILLIGRAM
     Route: 048
     Dates: start: 20211222
  4. GABAPENTIN [Suspect]
     Active Substance: GABAPENTIN
     Indication: Product used for unknown indication
     Dosage: 2100 MILLIGRAM
     Route: 048
     Dates: start: 20211222
  5. CLOMETHIAZOLE [Suspect]
     Active Substance: CLOMETHIAZOLE
     Indication: Product used for unknown indication
     Dosage: UNK
     Route: 065
     Dates: start: 20211222
  6. PROPIOMAZINE [Suspect]
     Active Substance: PROPIOMAZINE
     Indication: Product used for unknown indication
     Dosage: 150 MILLIGRAM
     Route: 048
     Dates: start: 20211222
  7. ZUCLOPENTHIXOL [Suspect]
     Active Substance: ZUCLOPENTHIXOL
     Indication: Product used for unknown indication
     Dosage: 70 MILLIGRAM
     Route: 048
     Dates: start: 20211222

REACTIONS (2)
  - Intentional self-injury [Unknown]
  - Intentional overdose [Unknown]

NARRATIVE: CASE EVENT DATE: 20211222
